FAERS Safety Report 23794880 (Version 10)
Quarter: 2024Q4

REPORT INFORMATION
  Report Type: Spontaneous
  Country: US (occurrence: US)
  Receive Date: 20240429
  Receipt Date: 20241129
  Transmission Date: 20250115
  Serious: No
  Sender: PFIZER
  Company Number: US-PFIZER INC-202400091928

PATIENT
  Age: 14 Year
  Sex: Male

DRUGS (1)
  1. GENOTROPIN [Suspect]
     Active Substance: SOMATROPIN
     Dosage: 1.4 MG, DAILY
     Dates: start: 202404

REACTIONS (7)
  - Illness [Unknown]
  - Poor quality device used [Unknown]
  - Drug dose omission by device [Unknown]
  - Overdose [Unknown]
  - Device issue [Unknown]
  - Device leakage [Unknown]
  - Device use error [Unknown]
